FAERS Safety Report 15686220 (Version 1)
Quarter: 2018Q4

REPORT INFORMATION
  Report Type: Spontaneous
  Country: IT (occurrence: IT)
  Receive Date: 20181204
  Receipt Date: 20181204
  Transmission Date: 20190205
  Serious: Yes (Other)
  Sender: FDA-Public Use
  Company Number: PHHY2018IT170407

PATIENT
  Age: 58 Year
  Sex: Female

DRUGS (1)
  1. TEGRETOL [Suspect]
     Active Substance: CARBAMAZEPINE
     Indication: CERVICOBRACHIAL SYNDROME
     Dosage: 200 MG, QD
     Route: 048
     Dates: start: 20181019, end: 20181119

REACTIONS (7)
  - Pyrexia [Recovering/Resolving]
  - Rash generalised [Recovering/Resolving]
  - Heat stroke [Recovering/Resolving]
  - Ear swelling [Recovering/Resolving]
  - Toxic skin eruption [Recovering/Resolving]
  - Macular oedema [Recovering/Resolving]
  - Pruritus [Recovering/Resolving]

NARRATIVE: CASE EVENT DATE: 20181118
